FAERS Safety Report 26200536 (Version 1)
Quarter: 2025Q4

REPORT INFORMATION
  Report Type: Report from Study
  Country: EU (occurrence: EU)
  Receive Date: 20251225
  Receipt Date: 20251225
  Transmission Date: 20260118
  Serious: Yes (Other)
  Sender: ABBVIE
  Company Number: EU-ABBVIE-6606881

PATIENT

DRUGS (2)
  1. SEVOFLURANE [Suspect]
     Active Substance: SEVOFLURANE
     Indication: Sedation
     Route: 055
  2. PROPOFOL [Suspect]
     Active Substance: PROPOFOL
     Indication: Sedation
     Route: 065

REACTIONS (1)
  - Ventricular tachyarrhythmia [Recovered/Resolved]
